FAERS Safety Report 24984098 (Version 3)
Quarter: 2025Q4

REPORT INFORMATION
  Report Type: Spontaneous
  Country: US (occurrence: US)
  Receive Date: 20250219
  Receipt Date: 20251218
  Transmission Date: 20260118
  Serious: No
  Sender: ROCHE
  Company Number: US-ROCHE-10000207711

PATIENT
  Sex: Female

DRUGS (2)
  1. XOLAIR PFS [Suspect]
     Active Substance: OMALIZUMAB
     Indication: Urticaria
     Route: 058
     Dates: start: 201908
  2. XOLAIR PFS [Suspect]
     Active Substance: OMALIZUMAB

REACTIONS (6)
  - Abdominal distension [Unknown]
  - Peripheral swelling [Unknown]
  - Pharyngeal swelling [Unknown]
  - Stress [Unknown]
  - Swelling face [Unknown]
  - Off label use [Unknown]
